FAERS Safety Report 17627557 (Version 1)
Quarter: 2020Q2

REPORT INFORMATION
  Report Type: Other
  Country: US (occurrence: US)
  Receive Date: 20200405
  Receipt Date: 20200405
  Transmission Date: 20200713
  Serious: Yes (Life-Threatening, Hospitalization, Other)
  Sender: FDA-Public Use
  Company Number: US-C B FLEET CO INC-202003-US-001298

PATIENT
  Age: 14 Year
  Sex: Female

DRUGS (2)
  1. PHENAZOPYRIDINE HYDROCHLORIDE. [Suspect]
     Active Substance: PHENAZOPYRIDINE HYDROCHLORIDE
     Indication: SUICIDE ATTEMPT
     Dosage: DOSAGE UNKNOWN, TOOK A LARGE AMOUNT
     Route: 048
  2. CLARITHROMYCIN. [Suspect]
     Active Substance: CLARITHROMYCIN
     Indication: SUICIDE ATTEMPT
     Dosage: DOSAGE UNKNOWN, TOOK A LARGE AMOUNT

REACTIONS (6)
  - Methaemoglobinaemia [Recovered/Resolved]
  - Abdominal pain [Recovered/Resolved]
  - Suicide attempt [Recovered/Resolved]
  - Acute kidney injury [Recovered/Resolved]
  - Vomiting [Recovered/Resolved]
  - Intentional overdose [None]
